FAERS Safety Report 21419591 (Version 2)
Quarter: 2023Q1

REPORT INFORMATION
  Report Type: Spontaneous
  Country: US (occurrence: US)
  Receive Date: 20221006
  Receipt Date: 20230102
  Transmission Date: 20230418
  Serious: Yes (Other)
  Sender: FDA-Public Use
  Company Number: US-BRISTOL-MYERS SQUIBB COMPANY-2022-113776

PATIENT
  Age: 65 Year
  Sex: Female
  Weight: 120.6 kg

DRUGS (2)
  1. POMALYST [Suspect]
     Active Substance: POMALIDOMIDE
     Indication: Product used for unknown indication
     Dosage: DAILY FOR 21DAYS
     Route: 048
  2. POMALYST [Suspect]
     Active Substance: POMALIDOMIDE
     Dosage: DAILY FOR 21DAYS
     Route: 048

REACTIONS (5)
  - Fatigue [Unknown]
  - Neuropathy peripheral [Unknown]
  - Prescribed overdose [Unknown]
  - Joint swelling [Unknown]
  - Peripheral swelling [Unknown]
